FAERS Safety Report 9092990 (Version 1)
Quarter: 2013Q1

REPORT INFORMATION
  Report Type: Report from Study
  Country: US (occurrence: US)
  Receive Date: 20130218
  Receipt Date: 20130218
  Transmission Date: 20140127
  Serious: No
  Sender: FDA-Public Use
  Company Number: US-ABBOTT-12P-163-0973490-00

PATIENT
  Age: 49 Year
  Sex: Female
  Weight: 88.53 kg

DRUGS (4)
  1. SIMCOR 500MG/40MG [Suspect]
     Indication: LOW DENSITY LIPOPROTEIN ABNORMAL
     Dosage: 500MG/40MG AT BEDTIME
     Dates: start: 20120813
  2. SIMCOR 500/40 [Suspect]
     Indication: HIGH DENSITY LIPOPROTEIN ABNORMAL
  3. LISINOPRIL [Concomitant]
     Indication: PRODUCT USED FOR UNKNOWN INDICATION
  4. ASA [Concomitant]
     Indication: FLUSHING

REACTIONS (5)
  - Feeling abnormal [Recovered/Resolved]
  - Flushing [Recovered/Resolved]
  - Feeling hot [Recovered/Resolved]
  - Pruritus [Recovered/Resolved]
  - Paraesthesia [Recovered/Resolved]
